FAERS Safety Report 19019425 (Version 1)
Quarter: 2021Q1

REPORT INFORMATION
  Report Type: Spontaneous
  Country: US (occurrence: US)
  Receive Date: 20210316
  Receipt Date: 20210316
  Transmission Date: 20210420
  Serious: Yes (Other)
  Sender: FDA-Public Use
  Company Number: US-UPSHER-SMITH LABORATORIES, LLC-2021USL00186

PATIENT
  Sex: Female

DRUGS (2)
  1. AMIODARONE HYDROCHLORIDE. [Suspect]
     Active Substance: AMIODARONE HYDROCHLORIDE
     Indication: ATRIAL FIBRILLATION
     Dosage: UNK
     Route: 048
     Dates: start: 201511
  2. UNSPECIFIED MEDICATIONS [Suspect]
     Active Substance: UNSPECIFIED INGREDIENT
     Indication: UNEVALUABLE EVENT

REACTIONS (17)
  - Ulcerative keratitis [Unknown]
  - Visual impairment [Unknown]
  - Vitreous floaters [Unknown]
  - Injury corneal [Unknown]
  - Acute respiratory distress syndrome [Unknown]
  - Blindness [Unknown]
  - Thyroid disorder [Unknown]
  - Liver injury [Unknown]
  - Nervousness [Unknown]
  - Eye pain [Unknown]
  - Lung disorder [Unknown]
  - Visual acuity reduced [Unknown]
  - Asthenia [Unknown]
  - Vision blurred [Unknown]
  - Unevaluable event [Unknown]
  - Coordination abnormal [Unknown]
  - Off label use [Unknown]

NARRATIVE: CASE EVENT DATE: 201511
